FAERS Safety Report 6787268-1 (Version None)
Quarter: 2010Q2

REPORT INFORMATION
  Report Type: 
  Country: None (occurrence: None)
  Receive Date: 20100621
  Receipt Date: 20100615
  Transmission Date: 20101027
  Serious: Yes (Disabling, Other)
  Sender: FDA-Public Use
  Company Number: CL-145-2010

PATIENT
  Age: 58 Year
  Sex: Female
  Weight: 79 kg

DRUGS (2)
  1. CIPROFLOXACIN [Suspect]
     Indication: LOWER RESPIRATORY TRACT INFECTION
     Dosage: 500 MG TDS ORAL ROUTE
     Route: 048
     Dates: start: 20090415, end: 20090424
  2. ESCITALOPRAM [Concomitant]

REACTIONS (1)
  - EOSINOPHILIC FASCIITIS [None]
